FAERS Safety Report 5622309-6 (Version None)
Quarter: 2008Q1

REPORT INFORMATION
  Report Type: 
  Country: None (occurrence: None)
  Receive Date: 20080114
  Receipt Date: 20071022
  Transmission Date: 20080703
  Serious: Yes (Hospitalization)
  Sender: FDA-Public Use
  Company Number: A03200706106

PATIENT
  Age: 83 Year
  Sex: Female
  Weight: 61.22 kg

DRUGS (6)
  1. PLAVIX [Suspect]
     Indication: TRANSIENT ISCHAEMIC ATTACK
     Dosage: 75 MG QD - ORAL
     Route: 048
     Dates: start: 20030101
  2. ACETYLSALICYLIC ACID SRT [Concomitant]
  3. ROPINIROLE HCL [Concomitant]
  4. TOLTERODINE TARTRATE [Concomitant]
  5. RISEDRONATE SODIUM [Concomitant]
  6. ESOMEPRAZOLE [Concomitant]

REACTIONS (8)
  - DECREASED APPETITE [None]
  - FATIGUE [None]
  - INCREASED TENDENCY TO BRUISE [None]
  - MUSCULAR WEAKNESS [None]
  - SKIN LACERATION [None]
  - SOMNOLENCE [None]
  - TRANSIENT ISCHAEMIC ATTACK [None]
  - WEIGHT DECREASED [None]
